FAERS Safety Report 17192334 (Version 4)
Quarter: 2020Q1

REPORT INFORMATION
  Report Type: Report from Study
  Country: US (occurrence: US)
  Receive Date: 20191223
  Receipt Date: 20200203
  Transmission Date: 20200409
  Serious: Yes (Hospitalization)
  Sender: FDA-Public Use
  Company Number: US-GILEAD-2019-0441576

PATIENT
  Age: 71 Year
  Sex: Male
  Weight: 94 kg

DRUGS (38)
  1. ONDANSETRON [Concomitant]
     Active Substance: ONDANSETRON
     Dosage: 8,MG,ONCE
     Route: 042
     Dates: start: 20191210, end: 20191210
  2. AMLODIPINE [Concomitant]
     Active Substance: AMLODIPINE BESYLATE
     Dosage: 10,MG,DAILY
     Route: 048
     Dates: start: 20190905
  3. LEVETIRACETAM. [Concomitant]
     Active Substance: LEVETIRACETAM
     Dosage: 750,MG,TWICE DAILY
     Route: 048
     Dates: start: 20191126
  4. POTASSIUM CHLORIDE. [Concomitant]
     Active Substance: POTASSIUM CHLORIDE
     Dosage: 40,OTHER,AS NECESSARY
     Route: 042
     Dates: start: 20191129, end: 20191203
  5. HEPARIN [Concomitant]
     Active Substance: HEPARIN SODIUM
     Dosage: 200,OTHER,AS NECESSARY
     Route: 050
     Dates: start: 20191119
  6. FILGRASTIM [Concomitant]
     Active Substance: FILGRASTIM
     Dosage: 480,UG,ONCE
     Route: 058
     Dates: start: 20191124, end: 20191124
  7. POTASSIUM PHOSPHATES [Concomitant]
     Active Substance: POTASSIUM PHOSPHATE, DIBASIC\POTASSIUM PHOSPHATE, MONOBASIC
     Dosage: 30,OTHER,ONCE
     Route: 042
     Dates: start: 20191126, end: 20191126
  8. MAGNESIUM SULFATE. [Concomitant]
     Active Substance: MAGNESIUM SULFATE
     Dosage: 16,OTHER,AS NECESSARY
     Route: 042
     Dates: start: 20191126, end: 20191202
  9. MAGNESIUM SULFATE. [Concomitant]
     Active Substance: MAGNESIUM SULFATE
     Dosage: 16,OTHER,ONCE
     Dates: start: 20191211, end: 20191211
  10. MESNA. [Suspect]
     Active Substance: MESNA
     Indication: PROPHYLAXIS
     Dosage: ^500^
     Route: 042
     Dates: start: 20191121, end: 20191124
  11. ONDANSETRON [Concomitant]
     Active Substance: ONDANSETRON
     Dosage: 8,MG,ONCE
     Route: 042
     Dates: start: 20191119, end: 20191119
  12. FILGRASTIM [Concomitant]
     Active Substance: FILGRASTIM
     Dosage: 480,UG,DAILY
     Route: 058
     Dates: start: 20191127, end: 20191202
  13. POTASSIUM CHLORIDE. [Concomitant]
     Active Substance: POTASSIUM CHLORIDE
     Dosage: 40,OTHER,AS NECESSARY
     Route: 042
     Dates: start: 20191207, end: 20191210
  14. CYCLOPHOSPHAMIDE. [Suspect]
     Active Substance: CYCLOPHOSPHAMIDE
     Indication: BONE MARROW CONDITIONING REGIMEN
     Dosage: ^500^
     Route: 042
     Dates: start: 20191121, end: 20191123
  15. NORMAL SALINE [Concomitant]
     Active Substance: SODIUM CHLORIDE
     Dosage: 500,ML,ONCE
     Route: 042
     Dates: start: 20191204, end: 20191204
  16. SILODOSIN. [Concomitant]
     Active Substance: SILODOSIN
     Dosage: 8,MG,DAILY
     Route: 048
     Dates: start: 20190819
  17. DUTASTERIDE. [Concomitant]
     Active Substance: DUTASTERIDE
     Dosage: 0.5,MG,DAILY
     Route: 048
     Dates: start: 20190903
  18. VALACYCLOVIR [Concomitant]
     Active Substance: VALACYCLOVIR HYDROCHLORIDE
     Dosage: 500,MG,DAILY
     Route: 048
     Dates: start: 20191126
  19. ALLOPURINOL. [Concomitant]
     Active Substance: ALLOPURINOL
     Dosage: 300,MG,DAILY
     Route: 048
     Dates: start: 20191126, end: 20191203
  20. ACETAMINOPHEN. [Concomitant]
     Active Substance: ACETAMINOPHEN
     Dosage: 650,MG,AS NECESSARY
     Route: 048
     Dates: start: 20191205, end: 20191206
  21. AXICABTAGENE CILOLEUCEL [Suspect]
     Active Substance: AXICABTAGENE CILOLEUCEL
     Indication: DIFFUSE LARGE B-CELL LYMPHOMA
     Dosage: 68 ML
     Route: 042
     Dates: start: 20191126, end: 20191126
  22. FLUDARABINE [Suspect]
     Active Substance: FLUDARABINE PHOSPHATE
     Indication: BONE MARROW CONDITIONING REGIMEN
     Dosage: ^30^
     Route: 042
     Dates: start: 20191121, end: 20191123
  23. DIPHENHYDRAMINE. [Concomitant]
     Active Substance: DIPHENHYDRAMINE
     Dosage: 12.5,MG,ONCE
     Route: 042
     Dates: start: 20191210, end: 20191210
  24. VITAMIN D3 [Concomitant]
     Active Substance: CHOLECALCIFEROL
     Dosage: 1000,OTHER,DAILY
     Route: 048
     Dates: start: 20190907
  25. POTASSIUM CHLORIDE. [Concomitant]
     Active Substance: POTASSIUM CHLORIDE
     Dosage: 40,OTHER,DAILY
     Route: 042
     Dates: start: 20191126, end: 20191127
  26. ACETAMINOPHEN. [Concomitant]
     Active Substance: ACETAMINOPHEN
     Dosage: 650,MG,ONCE
     Route: 048
     Dates: start: 20191126, end: 20191126
  27. DIPHENHYDRAMINE. [Concomitant]
     Active Substance: DIPHENHYDRAMINE
     Dosage: 12.5,MG,ONCE
     Route: 042
     Dates: start: 20191119, end: 20191119
  28. DIPHENHYDRAMINE. [Concomitant]
     Active Substance: DIPHENHYDRAMINE
     Dosage: 50,MG,ONCE
     Route: 042
     Dates: start: 20191126, end: 20191126
  29. CLARITIN [Concomitant]
     Active Substance: LORATADINE
     Dosage: 10,MG,AS NECESSARY
     Route: 048
     Dates: start: 20190909
  30. HYDRALAZINE [Concomitant]
     Active Substance: HYDRALAZINE HYDROCHLORIDE
     Dosage: 10,MG,AS NECESSARY
     Route: 042
     Dates: start: 20191126, end: 20191202
  31. ONDANSETRON [Concomitant]
     Active Substance: ONDANSETRON
     Dosage: 16,MG,DAILY
     Route: 042
     Dates: start: 20191121, end: 20191123
  32. NORMAL SALINE [Concomitant]
     Active Substance: SODIUM CHLORIDE
     Dosage: 2000,ML,DAILY
     Route: 042
     Dates: start: 20191121, end: 20191123
  33. ENOXAPARIN [Concomitant]
     Active Substance: ENOXAPARIN
     Dosage: 40,MG,DAILY
     Route: 058
     Dates: start: 20191126, end: 20191127
  34. PENTAMIDINE [Concomitant]
     Active Substance: PENTAMIDINE
     Dosage: 300,MG,OTHER
     Route: 042
     Dates: start: 20191119
  35. PENTAMIDINE [Concomitant]
     Active Substance: PENTAMIDINE
     Dosage: 300,MG,ONCE
     Dates: start: 20191210, end: 20191210
  36. POLYETHYLENE GLYCOL [Concomitant]
     Active Substance: POLYETHYLENE GLYCOLS
     Dosage: 17,G,AS NECESSARY
     Route: 048
     Dates: start: 20190903
  37. LOSARTIN [Concomitant]
     Active Substance: LOSARTAN
     Dosage: 100,MG,DAILY
     Route: 048
     Dates: start: 20190903
  38. LORATADINE;PSEUDOEPHEDRINE [Concomitant]
     Active Substance: LORATADINE\PSEUDOEPHEDRINE SULFATE
     Dosage: 10-240,MG,ONCE
     Route: 048
     Dates: start: 20191126, end: 20191126

REACTIONS (2)
  - Cytokine release syndrome [Recovered/Resolved]
  - Confusional state [Recovered/Resolved]

NARRATIVE: CASE EVENT DATE: 20191205
